FAERS Safety Report 4865349-7 (Version None)
Quarter: 2005Q4

REPORT INFORMATION
  Report Type: 
  Country: None (occurrence: None)
  Receive Date: 20051216
  Receipt Date: 20051201
  Transmission Date: 20060501
  Serious: Yes (Life-Threatening, Other)
  Sender: FDA-Public Use
  Company Number: 2005-02262

PATIENT
  Age: 48 Year
  Sex: Female
  Weight: 37 kg

DRUGS (9)
  1. VELCADE [Suspect]
     Indication: MULTIPLE MYELOMA
     Dosage: 1.30 MG/M2, INTRAVENOUS
     Route: 042
     Dates: start: 20050716, end: 20050723
  2. VELCADE [Suspect]
     Indication: MULTIPLE MYELOMA
     Dosage: 1.30 MG/M2, INTRAVENOUS
     Route: 042
     Dates: start: 20050917
  3. FENTANYL [Suspect]
     Indication: CANCER PAIN
     Dosage: 5.00 MG, TRANSDERMAL
     Route: 062
     Dates: start: 20050711, end: 20050726
  4. ALENDRONATE SODIUM [Concomitant]
  5. DIFLUCAN (FLUCONAZOLE) [Concomitant]
  6. ALLOPURINOL [Concomitant]
  7. BAKTAR (SULFAMETHOXAZOLE, TRIMETHOPRIM) TABLET [Concomitant]
  8. GASTER OD (FAMOTIDINE) TABLET [Concomitant]
  9. ELCITONIN (ELCATONIN) [Concomitant]

REACTIONS (20)
  - ATELECTASIS [None]
  - ATROPHY [None]
  - BLOOD PH INCREASED [None]
  - CREATININE RENAL CLEARANCE DECREASED [None]
  - DRUG INEFFECTIVE [None]
  - DYSPNOEA [None]
  - HYPOXIA [None]
  - INTERSTITIAL LUNG DISEASE [None]
  - LUNG DISORDER [None]
  - MITRAL VALVE INCOMPETENCE [None]
  - PCO2 DECREASED [None]
  - PERICARDIAL EFFUSION [None]
  - PLEURAL EFFUSION [None]
  - PO2 INCREASED [None]
  - RESPIRATORY DISTRESS [None]
  - RIB FRACTURE [None]
  - SCAR [None]
  - SPUTUM CULTURE POSITIVE [None]
  - STAPHYLOCOCCAL INFECTION [None]
  - TRICUSPID VALVE INCOMPETENCE [None]
